FAERS Safety Report 8456381-5 (Version None)
Quarter: 2012Q2

REPORT INFORMATION
  Report Type: 
  Country: None (occurrence: None)
  Receive Date: 20120621
  Receipt Date: 20120618
  Transmission Date: 20120825
  Serious: Yes (Other)
  Sender: FDA-Public Use
  Company Number: GR-GLAXOSMITHKLINE-B0809284A

PATIENT
  Age: 70 Year
  Sex: Male

DRUGS (4)
  1. LIPITOR [Concomitant]
  2. OMACOR [Suspect]
     Indication: PRODUCT USED FOR UNKNOWN INDICATION
     Dosage: 1000MG PER DAY
     Route: 048
     Dates: end: 20120601
  3. DILTIAZEM HCL [Concomitant]
  4. ENALAPRIL MALEATE AND HYDROCHLOROTHIAZIDE [Concomitant]

REACTIONS (2)
  - HAEMATURIA [None]
  - BENIGN PROSTATIC HYPERPLASIA [None]
